FAERS Safety Report 9854142 (Version 1)
Quarter: 2014Q1

REPORT INFORMATION
  Report Type: Report from Study
  Country: JP (occurrence: JP)
  Receive Date: 20140129
  Receipt Date: 20140129
  Transmission Date: 20141002
  Serious: Yes (Death, Hospitalization)
  Sender: FDA-Public Use
  Company Number: JP-AMGEN-JPNCT2014006071

PATIENT
  Age: 81 Year
  Sex: Female
  Weight: 51 kg

DRUGS (18)
  1. DARBEPOETIN ALFA [Suspect]
     Indication: NEPHROGENIC ANAEMIA
     Dosage: 60 MUG, Q3WK
     Route: 040
     Dates: start: 20110630, end: 20120823
  2. SENNOSIDE                          /00571901/ [Concomitant]
     Dosage: UNK
     Route: 048
  3. ZYLORIC [Concomitant]
     Dosage: UNK
     Route: 048
  4. BAYASPIRIN [Concomitant]
     Dosage: UNK
     Route: 048
  5. GASTER D [Concomitant]
     Dosage: UNK
     Route: 048
  6. NITOROL R [Concomitant]
     Dosage: UNK
     Route: 048
  7. CONIEL [Concomitant]
     Dosage: UNK
     Route: 048
  8. SODIUM BICARBONATE [Concomitant]
     Dosage: UNK
     Route: 048
  9. SIGMART [Concomitant]
     Dosage: UNK
     Route: 048
  10. AMOBAN [Concomitant]
     Dosage: UNK
     Route: 048
  11. ARGAMATE [Concomitant]
     Dosage: UNK
     Route: 048
  12. DIART [Concomitant]
     Indication: NEPHROSCLEROSIS
     Dosage: UNK
     Route: 048
  13. BIOFERMIN R [Concomitant]
     Indication: CONSTIPATION
     Dosage: UNK
     Route: 048
  14. NITROPEN [Concomitant]
     Indication: ANGINA PECTORIS
     Dosage: UNK
     Route: 048
  15. FRANDOL S [Concomitant]
     Dosage: UNK
     Route: 062
  16. SUMILU [Concomitant]
     Dosage: UNK
     Route: 061
  17. SEPAMIT-R [Concomitant]
     Dosage: UNK
     Route: 048
  18. TAKEPRON [Concomitant]
     Dosage: UNK
     Route: 048

REACTIONS (3)
  - Cerebral haemorrhage [Fatal]
  - Cerebral infarction [Recovered/Resolved]
  - Dehydration [Recovered/Resolved]
